FAERS Safety Report 9423417 (Version 1)
Quarter: 2013Q3

REPORT INFORMATION
  Report Type: Spontaneous
  Country: US (occurrence: US)
  Receive Date: 20130726
  Receipt Date: 20130726
  Transmission Date: 20140515
  Serious: No
  Sender: FDA-Public Use
  Company Number: US-GALDERMA-US-GDP-12414461

PATIENT
  Age: 53 Year
  Sex: Female
  Weight: 84 kg

DRUGS (3)
  1. DIFFERIN (ADAPALENE) GEL, 0.3% [Suspect]
     Indication: ACNE
     Route: 061
     Dates: start: 20120630
  2. ZIANA [Suspect]
     Indication: ACNE
     Route: 061
  3. CERAVU FACIAL MOISTURIZING LOTION SPF30 [Concomitant]
     Indication: PROPHYLAXIS
     Route: 061

REACTIONS (2)
  - Skin hyperpigmentation [Not Recovered/Not Resolved]
  - Skin exfoliation [Not Recovered/Not Resolved]
